FAERS Safety Report 19763664 (Version 1)
Quarter: 2021Q3

REPORT INFORMATION
  Report Type: Spontaneous
  Country: FR (occurrence: FR)
  Receive Date: 20210830
  Receipt Date: 20210830
  Transmission Date: 20211014
  Serious: Yes (Death, Other)
  Sender: FDA-Public Use
  Company Number: FR-PFIZER INC-2021511642

PATIENT
  Age: 84 Year
  Sex: Male
  Weight: 39 kg

DRUGS (8)
  1. MELATONINE [Concomitant]
     Active Substance: MELATONIN
     Dosage: UNK
  2. KETOCONAZOLE. [Concomitant]
     Active Substance: KETOCONAZOLE
     Dosage: UNK
  3. SODIUM CHLORIDE. [Concomitant]
     Active Substance: SODIUM CHLORIDE
     Dosage: UNK
  4. DUPHALAC [Concomitant]
     Active Substance: LACTULOSE
     Dosage: UNK
  5. OXAZEPAM. [Concomitant]
     Active Substance: OXAZEPAM
     Dosage: UNK
  6. EDUCTYL [Concomitant]
     Active Substance: POTASSIUM BITARTRATE\SODIUM BICARBONATE
     Dosage: UNK
  7. SERTRALINE [Suspect]
     Active Substance: SERTRALINE HYDROCHLORIDE
     Indication: MIXED ANXIETY AND DEPRESSIVE DISORDER
     Dosage: 50 MG, DAILY
     Route: 048
     Dates: start: 20200908
  8. ZOPICLONE [Concomitant]
     Active Substance: ZOPICLONE
     Dosage: UNK

REACTIONS (2)
  - Sepsis [Fatal]
  - Diarrhoea [Recovered/Resolved]

NARRATIVE: CASE EVENT DATE: 20201030
